FAERS Safety Report 18403265 (Version 3)
Quarter: 2024Q4

REPORT INFORMATION
  Report Type: Report from Study
  Country: DE (occurrence: DE)
  Receive Date: 20201019
  Receipt Date: 20241022
  Transmission Date: 20250115
  Serious: Yes (Other)
  Sender: ROCHE
  Company Number: DE-ROCHE-2698153

PATIENT
  Age: 35 Year
  Sex: Female
  Weight: 84.0 kg

DRUGS (8)
  1. OCRELIZUMAB [Suspect]
     Active Substance: OCRELIZUMAB
     Indication: Multiple sclerosis
     Route: 042
     Dates: start: 20191107, end: 20191107
  2. RANITIDINE [Concomitant]
     Active Substance: RANITIDINE
     Dates: start: 20191107, end: 20191107
  3. DIMETHINDENE [Concomitant]
     Active Substance: DIMETHINDENE
     Dates: start: 20191107, end: 20191107
  4. FEMIBION [Concomitant]
     Dates: start: 201909, end: 20200105
  5. FEMIBION [Concomitant]
     Dates: start: 20200106, end: 20200212
  6. FEMIBION [Concomitant]
     Dates: start: 20200213, end: 20200902
  7. VAGISAN (GERMANY) [Concomitant]
     Dates: start: 20200702, end: 20200709
  8. URSODIOL [Concomitant]
     Active Substance: URSODIOL
     Dates: start: 20200825, end: 20200902

REACTIONS (2)
  - Cholestasis of pregnancy [Recovered/Resolved]
  - Maternal exposure before pregnancy [Unknown]

NARRATIVE: CASE EVENT DATE: 20200819
